FAERS Safety Report 7022794-1 (Version None)
Quarter: 2010Q3

REPORT INFORMATION
  Report Type: 
  Country: None (occurrence: None)
  Receive Date: 20100930
  Receipt Date: 20100927
  Transmission Date: 20110219
  Serious: Yes (Hospitalization)
  Sender: FDA-Public Use
  Company Number: A0883921A

PATIENT
  Age: 61 Year
  Sex: Male

DRUGS (1)
  1. AVANDIA [Suspect]
     Indication: DIABETES MELLITUS
     Dosage: 4MG TWICE PER DAY
     Route: 048
     Dates: start: 20060905, end: 20080705

REACTIONS (4)
  - CARDIAC FAILURE CONGESTIVE [None]
  - LUNG DISORDER [None]
  - MYOCARDIAL INFARCTION [None]
  - TYPE 1 DIABETES MELLITUS [None]
